FAERS Safety Report 8830905 (Version 3)
Quarter: 2012Q4

REPORT INFORMATION
  Report Type: 
  Country: FR (occurrence: FR)
  Receive Date: 20121008
  Receipt Date: 20121221
  Transmission Date: 20130627
  Serious: Yes (Life-Threatening, Hospitalization)
  Sender: FDA-Public Use
  Company Number: FR-BAYER-2012-102376

PATIENT
  Age: 43 Year
  Sex: Female

DRUGS (2)
  1. MIRENA [Suspect]
     Indication: METRORRHAGIA
     Dosage: 20 mcg/24hr, CONT
     Route: 015
     Dates: start: 200701, end: 201202
  2. MIRENA [Suspect]
     Indication: PREVENTION
     Dosage: 20 mcg/24hr, CONT
     Route: 015
     Dates: start: 201202

REACTIONS (4)
  - Ischaemic stroke [Recovered/Resolved]
  - Aphasia [Recovered/Resolved]
  - Monoplegia [Recovered/Resolved]
  - VIIth nerve paralysis [Recovered/Resolved]
